FAERS Safety Report 8303572 (Version 4)
Quarter: 2012Q4

REPORT INFORMATION
  Report Type: Report from Study
  Country: US (occurrence: US)
  Receive Date: 20111220
  Receipt Date: 20120924
  Transmission Date: 20130627
  Serious: Yes (Hospitalization)
  Sender: FDA-Public Use
  Company Number: US-UCBSA-031435

PATIENT
  Age: 41 Year
  Sex: Male
  Weight: 92.07 kg

DRUGS (4)
  1. CIMZIA [Suspect]
     Indication: CROHN^S DISEASE
     Dosage: 400 MG
     Route: 058
     Dates: start: 20101231, end: 2011
  2. BENICAR [Concomitant]
     Indication: HYPERTENSION
  3. PREDNISONE [Concomitant]
     Indication: CROHN^S DISEASE
     Dates: start: 20101222
  4. 6-MP [Concomitant]
     Indication: CROHN^S DISEASE
     Dates: start: 20110301

REACTIONS (1)
  - Abdominal abscess [Recovered/Resolved]
